FAERS Safety Report 5424561-9 (Version None)
Quarter: 2007Q3

REPORT INFORMATION
  Report Type: 
  Country: None (occurrence: None)
  Receive Date: 20070726
  Receipt Date: 20070427
  Transmission Date: 20080115
  Serious: No
  Sender: FDA-Public Use
  Company Number: POMP-11037

PATIENT
  Sex: Female

DRUGS (2)
  1. MYOZYME [Suspect]
     Indication: GLYCOGEN STORAGE DISEASE TYPE II
     Dates: start: 20070215
  2. WELLBUTRIN [Concomitant]

REACTIONS (2)
  - DEPRESSION [None]
  - GASTROENTERITIS VIRAL [None]
